FAERS Safety Report 8184970 (Version 6)
Quarter: 2013Q2

REPORT INFORMATION
  Report Type: Other
  Country: GB (occurrence: GB)
  Receive Date: 20111018
  Receipt Date: 20130409
  Transmission Date: 20140414
  Serious: Yes (Hospitalization, Other)
  Sender: FDA-Public Use
  Company Number: GB-BRISTOL-MYERS SQUIBB COMPANY-16145534

PATIENT
  Age: 54 Year
  Sex: Male

DRUGS (11)
  1. METFORMIN HCL [Suspect]
     Dosage: INTER AND RESTARTED
     Route: 065
  2. ACETYLSALICYLIC ACID [Suspect]
     Route: 065
  3. EXENATIDE [Suspect]
     Dosage: DOSE INCREASED TO 10UG, 2X/DAY AFTER FOUR HOURS.?10MCG,2 IN 1 DAY?5MCG ,2 IN 1 DAY10 MCG 2 IN 1 D
     Route: 065
  4. PREGABALIN [Suspect]
     Route: 065
  5. INSULIN GLARGINE [Suspect]
     Dosage: 1DF:116 UNITS
     Route: 065
  6. GLICLAZIDE [Suspect]
     Route: 065
  7. ROSUVASTATIN [Suspect]
     Route: 065
  8. CANDESARTAN [Suspect]
     Dosage: LATER 5 MCG
  9. AMITRIPTYLINE [Suspect]
     Route: 065
  10. QUININE SULFATE [Suspect]
     Route: 065
  11. LEVOTHYROXINE [Suspect]
     Route: 065

REACTIONS (6)
  - Renal failure acute [Recovering/Resolving]
  - Gastrointestinal disorder [Recovering/Resolving]
  - Body mass index decreased [Unknown]
  - Malaise [Recovering/Resolving]
  - Off label use [Recovered/Resolved]
  - Potentiating drug interaction [Recovered/Resolved]
